FAERS Safety Report 5283138-9 (Version None)
Quarter: 2007Q1

REPORT INFORMATION
  Report Type: 
  Country: None (occurrence: None)
  Receive Date: 20061226
  Receipt Date: 20061018
  Transmission Date: 20070707
  Serious: No
  Sender: FDA-Public Use
  Company Number: PHEH2006US13113

PATIENT
  Age: 69 Year
  Sex: Female

DRUGS (6)
  1. ENABLEX [Suspect]
     Indication: URINARY INCONTINENCE
     Dosage: 15 MG, QD
     Dates: start: 20060501, end: 20061001
  2. NEXIUM [Concomitant]
  3. SYNTHROID [Concomitant]
  4. LIPITOR /NET/(ATORVASTATIN CALCIUM) [Concomitant]
  5. AVALIDE [Concomitant]
  6. EVISTA [Concomitant]

REACTIONS (1)
  - RASH [None]
